FAERS Safety Report 4362245-9 (Version None)
Quarter: 2004Q2

REPORT INFORMATION
  Report Type: 
  Country: None (occurrence: None)
  Receive Date: 20040519
  Receipt Date: 20040519
  Transmission Date: 20050107
  Serious: Yes (Life-Threatening, Hospitalization, Disabling)
  Sender: FDA-Public Use
  Company Number: None

PATIENT
  Age: 71 Year
  Sex: Male
  Weight: 80.5 kg

DRUGS (5)
  1. ALUPENT [Suspect]
     Indication: NON-HODGKIN'S LYMPHOMA
     Dosage: 1 IN 3 D, IV
     Route: 042
     Dates: start: 20040118, end: 20040504
  2. ASTMOPENT(AMINOSALICYLATE CALCIUM ALUMINIUM) [Suspect]
     Indication: INFECTION PARASITIC
  3. B-PAS (AMINOSALICYLATE CALCIUM) [Concomitant]
  4. METHYLOPA (METHLDOPA) [Concomitant]
  5. DOPEGIT (METHYLOPA) [Concomitant]

REACTIONS (7)
  - BONE PAIN [None]
  - FEBRILE NEUTROPENIA [None]
  - LUNG CONSOLIDATION [None]
  - MUCOSAL INFLAMMATION [None]
  - NEUTROPENIC SEPSIS [None]
  - PARAESTHESIA [None]
  - PNEUMONIA [None]
